FAERS Safety Report 8873731 (Version 1)
Quarter: 2012Q4

REPORT INFORMATION
  Report Type: 
  Country: US (occurrence: US)
  Receive Date: 20121023
  Receipt Date: 20121023
  Transmission Date: 20130627
  Serious: No
  Sender: FDA-Public Use
  Company Number: US-ASTELLAS-2012US001669

PATIENT
  Age: 54 Year
  Sex: Female

DRUGS (2)
  1. LEXISCAN [Suspect]
     Indication: PRODUCT USED FOR UNKNOWN INDICATION
     Dosage: 5 ml, Total Dose
     Route: 042
     Dates: start: 20120204, end: 20120204
  2. LEXISCAN [Suspect]
     Dosage: 5 ml, Total Dose
     Route: 042
     Dates: start: 20120204, end: 20120204

REACTIONS (2)
  - Incorrect dose administered [Unknown]
  - Injection site extravasation [Unknown]
